FAERS Safety Report 16380248 (Version 6)
Quarter: 2019Q4

REPORT INFORMATION
  Report Type: Spontaneous
  Country: JP (occurrence: JP)
  Receive Date: 20190601
  Receipt Date: 20191208
  Transmission Date: 20200122
  Serious: Yes (Hospitalization)
  Sender: FDA-Public Use
  Company Number: JP-BRISTOL-MYERS SQUIBB COMPANY-BMS-2019-017660

PATIENT
  Age: 68 Year
  Sex: Male
  Weight: 62 kg

DRUGS (2)
  1. OPDIVO [Suspect]
     Active Substance: NIVOLUMAB
     Indication: METASTATIC RENAL CELL CARCINOMA
     Dosage: 240 MILLIGRAM
     Route: 041
     Dates: start: 20190129, end: 20190403
  2. YERVOY [Suspect]
     Active Substance: IPILIMUMAB
     Indication: METASTATIC RENAL CELL CARCINOMA
     Dosage: 75 MILLIGRAM
     Route: 041
     Dates: start: 20190129, end: 20190403

REACTIONS (5)
  - Nausea [Not Recovered/Not Resolved]
  - Hypopituitarism [Recovering/Resolving]
  - Product preparation error [Unknown]
  - Headache [Recovering/Resolving]
  - Hypophysitis [Unknown]

NARRATIVE: CASE EVENT DATE: 201904
